FAERS Safety Report 4861356-9 (Version None)
Quarter: 2005Q4

REPORT INFORMATION
  Report Type: 
  Country: None (occurrence: None)
  Receive Date: 20051129
  Receipt Date: 20050328
  Transmission Date: 20060501
  Serious: Yes (Life-Threatening, Hospitalization, Other)
  Sender: FDA-Public Use
  Company Number: USA050394486

PATIENT
  Sex: Male

DRUGS (1)
  1. ZYPREXA [Suspect]
     Dosage: 520 MG
     Dates: start: 20050325, end: 20050325

REACTIONS (2)
  - INTENTIONAL DRUG MISUSE [None]
  - SUICIDE ATTEMPT [None]
